FAERS Safety Report 24003848 (Version 2)
Quarter: 2024Q3

REPORT INFORMATION
  Report Type: Spontaneous
  Country: US (occurrence: US)
  Receive Date: 20240624
  Receipt Date: 20240704
  Transmission Date: 20241017
  Serious: No
  Sender: BAUSCH AND LOMB
  Company Number: US-BAUSCHBL-2024BNL028626

PATIENT
  Age: 89 Year
  Sex: Female

DRUGS (1)
  1. LOTEMAX [Suspect]
     Active Substance: LOTEPREDNOL ETABONATE
     Indication: Product used for unknown indication
     Dosage: INSTILLED ONE DROP OF LOTEMAX GEL IN EACH EYE
     Route: 047

REACTIONS (3)
  - Corneal transplant [Unknown]
  - Visual impairment [Unknown]
  - Product use complaint [Unknown]
